FAERS Safety Report 5163055-5 (Version None)
Quarter: 2006Q4

REPORT INFORMATION
  Report Type: 
  Country: None (occurrence: None)
  Receive Date: 20061201
  Receipt Date: 20061128
  Transmission Date: 20070319
  Serious: Yes (Hospitalization)
  Sender: FDA-Public Use
  Company Number: AU-BOEHRINGER INGELHEIM PHARMACEUTICALS, INC.-2006-BP-13886AU

PATIENT
  Sex: Female

DRUGS (8)
  1. ASASANTIN SR [Suspect]
     Indication: CEREBROVASCULAR DISORDER
     Dosage: 200/25 MG/MG
     Route: 048
     Dates: start: 20000101, end: 20060213
  2. ESOMEPRAZOLE MAGNESIUM [Concomitant]
     Indication: PEPTIC ULCER
  3. PAROXETINE HCL [Concomitant]
     Indication: AFFECTIVE DISORDER
  4. VALPROATE SODIUM [Concomitant]
     Indication: AFFECTIVE DISORDER
  5. SINEMET [Concomitant]
     Indication: PARKINSON'S DISEASE
  6. RAMIPRIL [Concomitant]
     Indication: ESSENTIAL HYPERTENSION
  7. SIMVASTATIN [Concomitant]
     Indication: METABOLIC DISORDER
  8. ZOLPIDEM TARTRATE [Concomitant]
     Indication: SLEEP DISORDER

REACTIONS (5)
  - HYPOTENSION [None]
  - LETHARGY [None]
  - MALAISE [None]
  - THROMBOCYTOPENIA [None]
  - VITAMIN B12 DEFICIENCY [None]
